FAERS Safety Report 8930400 (Version 1)
Quarter: 2012Q4

REPORT INFORMATION
  Report Type: 
  Country: US (occurrence: US)
  Receive Date: 20121128
  Receipt Date: 20121128
  Transmission Date: 20130627
  Serious: Yes (Other)
  Sender: FDA-Public Use
  Company Number: US-ASTRAZENECA-2012SE87531

PATIENT
  Sex: Male

DRUGS (2)
  1. BRILINTA [Suspect]
     Indication: STENT PLACEMENT
     Route: 048
  2. PLAVIX [Suspect]
     Route: 048

REACTIONS (1)
  - Coronary artery restenosis [Recovered/Resolved]
